FAERS Safety Report 5132442-3 (Version None)
Quarter: 2006Q4

REPORT INFORMATION
  Report Type: 
  Country: None (occurrence: None)
  Receive Date: 20061023
  Receipt Date: 20061013
  Transmission Date: 20070319
  Serious: Yes (Death, Hospitalization)
  Sender: FDA-Public Use
  Company Number: IT-AVENTIS-200620731GDDC

PATIENT
  Age: 57 Year
  Sex: Female

DRUGS (2)
  1. TAXOTERE [Suspect]
     Indication: BREAST CANCER METASTATIC
     Route: 042
     Dates: start: 20060802, end: 20060920
  2. DOXORUBICIN HCL [Suspect]
     Indication: BREAST CANCER METASTATIC
     Route: 042
     Dates: start: 20060802, end: 20060920

REACTIONS (6)
  - COMA [None]
  - FEBRILE NEUTROPENIA [None]
  - OLIGURIA [None]
  - PULMONARY OEDEMA [None]
  - SEPSIS [None]
  - STOMATITIS [None]
